FAERS Safety Report 21796366 (Version 1)
Quarter: 2022Q4

REPORT INFORMATION
  Report Type: Spontaneous
  Country: GB (occurrence: GB)
  Receive Date: 20221229
  Receipt Date: 20221229
  Transmission Date: 20230112
  Serious: Yes (Other)
  Sender: FDA-Public Use
  Company Number: GB-PAIPHARMA-2022-UK-000297

PATIENT
  Age: 40 Year
  Sex: Female

DRUGS (2)
  1. RISPERIDONE [Suspect]
     Active Substance: RISPERIDONE
     Indication: Delusion
     Dosage: 2 MG TWICE DAILY
     Dates: start: 201911, end: 20210504
  2. LEVOTHYROXINE [Concomitant]
     Active Substance: LEVOTHYROXINE
     Dosage: 150 MICROGRAM DAILY

REACTIONS (1)
  - Thyroid disorder [Recovered/Resolved]
